FAERS Safety Report 18700034 (Version 1)
Quarter: 2021Q1

REPORT INFORMATION
  Report Type: Spontaneous
  Country: AR (occurrence: AR)
  Receive Date: 20210105
  Receipt Date: 20210105
  Transmission Date: 20210419
  Serious: Yes (Other)
  Sender: FDA-Public Use
  Company Number: AR-PFIZER INC-2020519570

PATIENT
  Age: 66 Year
  Sex: Female

DRUGS (1)
  1. SOMAVERT [Suspect]
     Active Substance: PEGVISOMANT
     Indication: ACROMEGALY
     Dosage: 20 MG, 7 TIMES PER WEEK
     Dates: start: 20070402, end: 202010

REACTIONS (4)
  - Pneumonia [Unknown]
  - Gastrointestinal infection [Unknown]
  - Gastrointestinal haemorrhage [Unknown]
  - COVID-19 [Unknown]

NARRATIVE: CASE EVENT DATE: 202010
